FAERS Safety Report 10101649 (Version 1)
Quarter: 2014Q2

REPORT INFORMATION
  Report Type: Spontaneous
  Country: US (occurrence: None)
  Receive Date: 20140423
  Receipt Date: 20140423
  Transmission Date: 20141212
  Serious: Yes (Other)
  Sender: FDA-Public Use
  Company Number: None

PATIENT
  Age: 63 Year
  Sex: Male
  Weight: 73.03 kg

DRUGS (1)
  1. NASACORT [Suspect]
     Indication: MULTIPLE ALLERGIES
     Dosage: 2 SPRAYS INTO EACH NOSTRIL  ONCE DAILY INHALATION
     Route: 055
     Dates: start: 20140417, end: 20140421

REACTIONS (3)
  - Urticaria [None]
  - Dizziness [None]
  - Blood pressure increased [None]
